FAERS Safety Report 15403275 (Version 1)
Quarter: 2018Q3

REPORT INFORMATION
  Report Type: Spontaneous
  Country: CA (occurrence: CA)
  Receive Date: 20180919
  Receipt Date: 20180919
  Transmission Date: 20181010
  Serious: Yes (Other)
  Sender: FDA-Public Use
  Company Number: CA-BAYER-2018-172804

PATIENT
  Age: 47 Year
  Sex: Female

DRUGS (1)
  1. MIRENA [Suspect]
     Active Substance: LEVONORGESTREL
     Dosage: 20 MCG/24HR, CONT
     Route: 015
     Dates: start: 201603, end: 201808

REACTIONS (4)
  - Anxiety [Recovered/Resolved]
  - Anger [Recovered/Resolved]
  - Self-injurious ideation [Recovered/Resolved]
  - Mood swings [Recovered/Resolved]
